FAERS Safety Report 8134633-6 (Version None)
Quarter: 2012Q1

REPORT INFORMATION
  Report Type: 
  Country: None (occurrence: None)
  Receive Date: 20120214
  Receipt Date: 20120210
  Transmission Date: 20120608
  Serious: Yes (Hospitalization)
  Sender: FDA-Public Use
  Company Number: FR-SANOFI-AVENTIS-2011SA045465

PATIENT
  Age: 85 Year
  Sex: Male
  Weight: 88 kg

DRUGS (9)
  1. MULTAQ [Suspect]
     Indication: ATRIAL FLUTTER
     Route: 048
     Dates: start: 20101101, end: 20110401
  2. LASIX [Concomitant]
  3. VASTAREL ^BIOPHARMA^ [Concomitant]
  4. ALFUZOSIN HCL [Concomitant]
  5. RAMIPRIL [Concomitant]
  6. BISOPROLOL FUMARATE [Concomitant]
  7. ESOMEPRAZOLE [Concomitant]
  8. CORDARONE [Suspect]
     Indication: ATRIAL FLUTTER
     Route: 048
     Dates: start: 20100501, end: 20101101
  9. ALLOPURINOL [Concomitant]

REACTIONS (3)
  - PHOTOSENSITIVITY REACTION [None]
  - TOXIC SKIN ERUPTION [None]
  - SKIN LESION [None]
